FAERS Safety Report 10053407 (Version 1)
Quarter: 2014Q2

REPORT INFORMATION
  Report Type: Report from Study
  Country: US (occurrence: US)
  Receive Date: 20140402
  Receipt Date: 20140402
  Transmission Date: 20141212
  Serious: Yes (Hospitalization)
  Sender: FDA-Public Use
  Company Number: US-ELI_LILLY_AND_COMPANY-US201403008918

PATIENT
  Age: 70 Year
  Sex: Male
  Weight: 86.1 kg

DRUGS (9)
  1. GEMCITABINE HYDROCHLORIDE [Suspect]
     Indication: PANCREATIC CARCINOMA
     Dosage: 1000 MG/M2, CYCLICAL
     Route: 042
     Dates: start: 20130625, end: 20130708
  2. GEMCITABINE HYDROCHLORIDE [Suspect]
     Dosage: 1000 MG/M2, CYCLICAL
     Dates: start: 20130715
  3. PACLITAXEL [Suspect]
     Indication: PANCREATIC CARCINOMA
     Dosage: 125 MG/M2, CYCLICAL
     Route: 042
     Dates: start: 20130625, end: 20130708
  4. PACLITAXEL [Suspect]
     Dosage: 125 MG/M2, CYCLICAL
     Route: 042
     Dates: start: 20130715
  5. OTHER PHARMA COMPANY INV DRUG [Suspect]
     Indication: PANCREATIC CARCINOMA
     Dosage: 3.0 ?G/KG, CYCLICAL
     Route: 042
     Dates: start: 20130624, end: 20130705
  6. OTHER PHARMA COMPANY INV DRUG [Suspect]
     Dosage: 3.0 ?G/KG, CYCLICAL
     Route: 042
     Dates: start: 20130715
  7. ACETAMINOPHEN [Concomitant]
     Indication: PRODUCT USED FOR UNKNOWN INDICATION
     Dosage: UNK
     Dates: start: 20130627, end: 20130706
  8. MIRALAX [Concomitant]
     Indication: PRODUCT USED FOR UNKNOWN INDICATION
     Dosage: UNK
     Dates: start: 20130626, end: 20130705
  9. ONDANSETRON [Concomitant]
     Indication: PRODUCT USED FOR UNKNOWN INDICATION
     Dosage: UNK
     Dates: start: 20130704, end: 20130705

REACTIONS (1)
  - Infection [Recovered/Resolved]
